FAERS Safety Report 25892900 (Version 1)
Quarter: 2025Q4

REPORT INFORMATION
  Report Type: Spontaneous
  Country: JP (occurrence: JP)
  Receive Date: 20251007
  Receipt Date: 20251007
  Transmission Date: 20260117
  Serious: Yes (Other)
  Sender: JOHNSON AND JOHNSON
  Company Number: JP-JNJFOC-20251007878

PATIENT

DRUGS (2)
  1. LAZCLUZE [Suspect]
     Active Substance: LAZERTINIB
     Indication: EGFR gene mutation
     Dosage: DOSE UNKNOWN
     Route: 048
     Dates: start: 20250925, end: 2025
  2. LAZCLUZE [Suspect]
     Active Substance: LAZERTINIB
     Dosage: DOSE UNKNOWN, DOSE DECREASED
     Route: 048
     Dates: start: 2025

REACTIONS (3)
  - Arrhythmia [Unknown]
  - Syncope [Unknown]
  - Dizziness [Unknown]

NARRATIVE: CASE EVENT DATE: 20250101
